FAERS Safety Report 12966699 (Version 2)
Quarter: 2018Q3

REPORT INFORMATION
  Report Type: Report from Study
  Country: GB (occurrence: GB)
  Receive Date: 20161123
  Receipt Date: 20180717
  Transmission Date: 20181010
  Serious: Yes (Other)
  Sender: FDA-Public Use
  Company Number: GB-ROCHE-1856611

PATIENT
  Sex: Female

DRUGS (1)
  1. TOCILIZUMAB. [Suspect]
     Active Substance: TOCILIZUMAB
     Indication: RHEUMATOID ARTHRITIS
     Route: 058
     Dates: start: 20150810, end: 20161006

REACTIONS (3)
  - Pancreatic carcinoma [Unknown]
  - Hypoalbuminaemia [Unknown]
  - Oedema [Unknown]

NARRATIVE: CASE EVENT DATE: 20160926
